FAERS Safety Report 16053046 (Version 1)
Quarter: 2019Q1

REPORT INFORMATION
  Report Type: Spontaneous
  Country: CN (occurrence: CN)
  Receive Date: 20190308
  Receipt Date: 20190308
  Transmission Date: 20190418
  Serious: Yes (Other)
  Sender: FDA-Public Use
  Company Number: CN-PFIZER INC-2019095556

PATIENT
  Age: 78 Year
  Sex: Male

DRUGS (2)
  1. METHOTREXATE. [Suspect]
     Active Substance: METHOTREXATE
     Indication: LYMPHOMA
     Dosage: 6000 MG/M2, CYCLIC(ONCE A MONTH)
     Route: 041
     Dates: start: 20190301, end: 20190301
  2. SODIUM CHLORIDE. [Concomitant]
     Active Substance: SODIUM CHLORIDE
     Dosage: 500 ML, CYCLIC(ONCE A MONTH)
     Route: 041
     Dates: start: 20190301, end: 20190301

REACTIONS (5)
  - Hyperhidrosis [Unknown]
  - Confusional state [Recovering/Resolving]
  - Vomiting [Unknown]
  - Blood pressure decreased [Recovering/Resolving]
  - Tremor [Unknown]

NARRATIVE: CASE EVENT DATE: 20190301
